FAERS Safety Report 22379625 (Version 1)
Quarter: 2023Q2

REPORT INFORMATION
  Report Type: Spontaneous
  Country: US (occurrence: US)
  Receive Date: 20230529
  Receipt Date: 20230529
  Transmission Date: 20230722
  Serious: No
  Sender: FDA-Public Use
  Company Number: US-GSKCCFUS-Case-01704816_AE-96229

PATIENT
  Sex: Male

DRUGS (1)
  1. TRELEGY ELLIPTA [Suspect]
     Active Substance: FLUTICASONE FUROATE\UMECLIDINIUM BROMIDE\VILANTEROL TRIFENATATE
     Indication: Product used for unknown indication
     Dosage: UNK,200/62.5/25MCG 1X30D

REACTIONS (8)
  - Paraesthesia oral [Recovered/Resolved]
  - Breath odour [Recovered/Resolved]
  - Taste disorder [Recovered/Resolved]
  - Productive cough [Recovered/Resolved]
  - Salivary hypersecretion [Recovered/Resolved]
  - Ageusia [Recovered/Resolved]
  - Dry mouth [Recovered/Resolved]
  - Breath odour [Recovered/Resolved]
